FAERS Safety Report 10917567 (Version 1)
Quarter: 2015Q1

REPORT INFORMATION
  Report Type: Report from Study
  Country: IT (occurrence: IT)
  Receive Date: 20150316
  Receipt Date: 20150316
  Transmission Date: 20150721
  Serious: Yes (Other)
  Sender: FDA-Public Use
  Company Number: IT-PFIZER INC-2015085605

PATIENT
  Age: 61 Year
  Sex: Female

DRUGS (2)
  1. SUTENT [Suspect]
     Active Substance: SUNITINIB MALATE
     Dosage: 37.5 MG, DAILY
     Route: 048
  2. CIPROFLOXACIN SANDOZ /00697202/ [Interacting]
     Active Substance: CIPROFLOXACIN
     Dosage: 500 MG, DAILY
     Route: 048

REACTIONS (10)
  - Asthenia [Recovering/Resolving]
  - Vomiting [Recovering/Resolving]
  - Drug interaction [Recovering/Resolving]
  - Stomatitis [Recovering/Resolving]
  - Neutropenia [Recovering/Resolving]
  - Blood thyroid stimulating hormone increased [Recovering/Resolving]
  - Hypertension [Recovering/Resolving]
  - Cystitis [Recovering/Resolving]
  - Decreased appetite [Recovering/Resolving]
  - Gastrointestinal disorder [Recovering/Resolving]

NARRATIVE: CASE EVENT DATE: 20150216
